FAERS Safety Report 6080254-9 (Version None)
Quarter: 2009Q1

REPORT INFORMATION
  Report Type: 
  Country: None (occurrence: None)
  Receive Date: 20090217
  Receipt Date: 20090210
  Transmission Date: 20090719
  Serious: Yes (Other)
  Sender: FDA-Public Use
  Company Number: CZ-ABBOTT-08P-217-0438506-00

PATIENT
  Sex: Female

DRUGS (4)
  1. HUMIRA [Suspect]
     Indication: RHEUMATOID ARTHRITIS
     Route: 058
     Dates: start: 20050811
  2. PREDNISONE [Concomitant]
     Indication: RHEUMATOID ARTHRITIS
     Route: 048
  3. ISONIAZID [Concomitant]
     Indication: TUBERCULOSIS
  4. ISONIAZID [Concomitant]
     Indication: PROPHYLACTIC CHEMOTHERAPY

REACTIONS (1)
  - LUNG INFILTRATION [None]
